FAERS Safety Report 20304451 (Version 1)
Quarter: 2022Q1

REPORT INFORMATION
  Report Type: Other
  Country: US (occurrence: None)
  Receive Date: 20220106
  Receipt Date: 20220106
  Transmission Date: 20220423
  Serious: Yes (Other)
  Sender: FDA-Public Use
  Company Number: US-ROCHE-2993373

PATIENT
  Sex: Female

DRUGS (3)
  1. ALECENSA [Suspect]
     Active Substance: ALECTINIB HYDROCHLORIDE
     Indication: Lung neoplasm malignant
     Dosage: TAKE 4 CAPSULE(S) BY MOUTH TWICE A DAY WITH FOOD
     Route: 048
  2. ATENOLOL [Concomitant]
     Active Substance: ATENOLOL
  3. RANITIDINE [Concomitant]
     Active Substance: RANITIDINE

REACTIONS (2)
  - Metastases to bone [Unknown]
  - Pain [Unknown]
